FAERS Safety Report 9570919 (Version 1)
Quarter: 2013Q3

REPORT INFORMATION
  Report Type: Spontaneous
  Country: US (occurrence: None)
  Receive Date: 20130927
  Receipt Date: 20130927
  Transmission Date: 20140515
  Serious: Yes (Hospitalization)
  Sender: FDA-Public Use
  Company Number: INT_00309_2013

PATIENT
  Age: 68 Year
  Sex: Male

DRUGS (4)
  1. CEFTRIAXONE [Suspect]
     Indication: PRODUCT USED FOR UNKNOWN INDICATION
     Dosage: 2 G 1X/12 HOURS INTRAVENOUS ( NOT OTHERWISE SPECIFIED)
     Route: 042
  2. CASPOFUNGIN [Concomitant]
  3. METRONIDAZOLE [Suspect]
  4. CORTICOSTEROIDS [Suspect]

REACTIONS (2)
  - Cholecystitis acute [None]
  - Cholelithiasis [None]
